FAERS Safety Report 6603011-0 (Version None)
Quarter: 2010Q1

REPORT INFORMATION
  Report Type: 
  Country: None (occurrence: None)
  Receive Date: 20100226
  Receipt Date: 20100217
  Transmission Date: 20100710
  Serious: Yes (Other)
  Sender: FDA-Public Use
  Company Number: NL-BAYER-201016049GPV

PATIENT
  Age: 27 Year
  Sex: Female
  Weight: 52 kg

DRUGS (1)
  1. MIRENA [Suspect]
     Indication: CONTRACEPTION
     Route: 015
     Dates: start: 20010601, end: 20060101

REACTIONS (9)
  - ACNE [None]
  - AFFECT LABILITY [None]
  - ALOPECIA [None]
  - FATIGUE [None]
  - GENITAL HERPES [None]
  - HEADACHE [None]
  - LOSS OF LIBIDO [None]
  - MYALGIA [None]
  - SKIN IRRITATION [None]
